FAERS Safety Report 17429568 (Version 1)
Quarter: 2020Q1

REPORT INFORMATION
  Report Type: Spontaneous
  Country: PR (occurrence: PR)
  Receive Date: 20200201
  Receipt Date: 20200201
  Transmission Date: 20200409
  Serious: Yes (Other)
  Sender: FDA-Public Use
  Company Number: None

PATIENT
  Age: 43 Year
  Sex: Female
  Weight: 69.75 kg

DRUGS (3)
  1. OSELTAMIVIR PHOSPHATE CAPSULES, USP 75 MG [Suspect]
     Active Substance: OSELTAMIVIR PHOSPHATE
     Indication: INFLUENZA
     Dosage: ?          QUANTITY:1 CAPSULE(S);?
     Route: 048
     Dates: start: 20200128, end: 20200201
  2. ALBUTEROL. [Concomitant]
     Active Substance: ALBUTEROL
  3. ACETAMINOFEN [Concomitant]
     Active Substance: ACETAMINOPHEN

REACTIONS (3)
  - Blood urine present [None]
  - Vaginal haemorrhage [None]
  - Cough [None]

NARRATIVE: CASE EVENT DATE: 20200130
